FAERS Safety Report 8312690 (Version 2)
Quarter: 2012Q4

REPORT INFORMATION
  Report Type: Report from Study
  Country: US (occurrence: US)
  Receive Date: 20111227
  Receipt Date: 20120925
  Transmission Date: 20130627
  Serious: Yes (Other)
  Sender: FDA-Public Use
  Company Number: US-BRISTOL-MYERS SQUIBB COMPANY-15565849

PATIENT
  Age: 64 Year
  Sex: Male
  Weight: 83 kg

DRUGS (13)
  1. DASATINIB [Suspect]
     Indication: PROSTATE CANCER
     Dosage: No of course:5
     Route: 048
     Dates: start: 20101115
  2. DOCETAXEL [Suspect]
     Indication: PROSTATE CANCER
     Route: 042
     Dates: start: 20101115, end: 20110526
  3. PREDNISONE [Suspect]
     Indication: PROSTATE CANCER
     Dosage: No of course:5
5mg
     Route: 048
     Dates: start: 20101115
  4. BLINDED: PLACEBO [Suspect]
     Indication: PROSTATE CANCER
     Route: 048
     Dates: start: 20101115
  5. DEXAMETHASONE [Concomitant]
     Dates: start: 20101114
  6. LUPRON [Concomitant]
     Dates: start: 20101208
  7. ASPIRIN [Concomitant]
     Dates: start: 20101218
  8. ZOMETA [Concomitant]
     Dosage: last dose on 10Nov2011
     Route: 042
     Dates: start: 200812
  9. HYDROCHLOROTHIAZIDE [Concomitant]
     Dosage: tabs
As needed
     Route: 048
     Dates: start: 20100616
  10. CALCIUM + VITAMIN D [Concomitant]
  11. MULTIVITAMIN [Concomitant]
     Dosage: 1df=1 tab
     Route: 048
     Dates: start: 200812
  12. NEULASTA [Concomitant]
  13. CALTRATE [Concomitant]
     Route: 048
     Dates: start: 200812

REACTIONS (1)
  - Metastatic squamous cell carcinoma [Recovering/Resolving]
